FAERS Safety Report 6974894-X (Version None)
Quarter: 2010Q3

REPORT INFORMATION
  Report Type: 
  Country: None (occurrence: None)
  Receive Date: 20100909
  Receipt Date: 20090403
  Transmission Date: 20110219
  Serious: No
  Sender: FDA-Public Use
  Company Number: US-WYE-H07398308

PATIENT
  Sex: Male
  Weight: 77.18 kg

DRUGS (8)
  1. PRISTIQ [Suspect]
     Indication: DEPRESSION
     Route: 048
     Dates: start: 20081201, end: 20081201
  2. PRISTIQ [Suspect]
     Route: 048
     Dates: start: 20081201, end: 20081201
  3. PRILOSEC [Concomitant]
  4. EFFEXOR XR [Concomitant]
     Dosage: UNKNOWN
     Route: 048
     Dates: start: 20060101, end: 20070101
  5. EFFEXOR XR [Concomitant]
     Route: 048
     Dates: start: 20070101, end: 20081201
  6. EFFEXOR XR [Concomitant]
     Route: 048
     Dates: start: 20081201, end: 20081201
  7. EFFEXOR XR [Concomitant]
     Route: 048
     Dates: start: 20081201, end: 20081201
  8. EFFEXOR XR [Concomitant]
     Route: 048
     Dates: start: 20081201

REACTIONS (2)
  - DISORIENTATION [None]
  - DIZZINESS [None]
